FAERS Safety Report 25828741 (Version 2)
Quarter: 2025Q4

REPORT INFORMATION
  Report Type: Spontaneous
  Country: US (occurrence: US)
  Receive Date: 20250922
  Receipt Date: 20251017
  Transmission Date: 20260117
  Serious: No
  Sender: ROCHE
  Company Number: US-ROCHE-10000389556

PATIENT
  Age: 74 Year
  Sex: Female
  Weight: 68.49 kg

DRUGS (3)
  1. OCREVUS [Suspect]
     Active Substance: OCRELIZUMAB
     Indication: Relapsing-remitting multiple sclerosis
     Route: 042
     Dates: start: 2020, end: 202407
  2. MODAFINIL [Concomitant]
     Active Substance: MODAFINIL
     Indication: Primary progressive multiple sclerosis
     Route: 048
  3. MODAFINIL [Concomitant]
     Active Substance: MODAFINIL

REACTIONS (2)
  - Fatigue [Unknown]
  - Peroneal nerve palsy [Not Recovered/Not Resolved]

NARRATIVE: CASE EVENT DATE: 20250101
